FAERS Safety Report 12108754 (Version 1)
Quarter: 2016Q1

REPORT INFORMATION
  Report Type: Spontaneous
  Country: US (occurrence: None)
  Receive Date: 20160222
  Receipt Date: 20160222
  Transmission Date: 20160526
  Serious: Yes (Disabling)
  Sender: FDA-Public Use
  Company Number: None

PATIENT
  Age: 61 Year
  Sex: Male
  Weight: 74.84 kg

DRUGS (12)
  1. VITAMIN C [Concomitant]
     Active Substance: ASCORBIC ACID
  2. MAGNESIUM [Concomitant]
     Active Substance: MAGNESIUM
  3. TRUVADA [Suspect]
     Active Substance: EMTRICITABINE\TENOFOVIR DISOPROXIL FUMARATE
     Indication: PROPHYLAXIS AGAINST HIV INFECTION
     Dosage: 1  ONCE DAILY TAKEN BY MOUTH
     Route: 048
  4. GABAPENTIN. [Concomitant]
     Active Substance: GABAPENTIN
  5. TERAZOSIN [Concomitant]
     Active Substance: TERAZOSIN\TERAZOSIN HYDROCHLORIDE
  6. NIACIN. [Concomitant]
     Active Substance: NIACIN
  7. COSTCO SUPER B COMPLEX MULTI VITAMIN [Concomitant]
  8. FINASTERIDE. [Concomitant]
     Active Substance: FINASTERIDE
  9. ALBUTEROL. [Concomitant]
     Active Substance: ALBUTEROL
  10. NOAPROXEN SODIUM [Concomitant]
  11. VITAMIN D3 [Concomitant]
     Active Substance: CHOLECALCIFEROL
  12. IBUPROFEN. [Concomitant]
     Active Substance: IBUPROFEN

REACTIONS (3)
  - Neuropathy peripheral [None]
  - General physical health deterioration [None]
  - Condition aggravated [None]

NARRATIVE: CASE EVENT DATE: 20160111
